FAERS Safety Report 9047968 (Version 1)
Quarter: 2013Q1

REPORT INFORMATION
  Report Type: Spontaneous
  Country: US (occurrence: US)
  Receive Date: 20130204
  Receipt Date: 20130204
  Transmission Date: 20140127
  Serious: No
  Sender: FDA-Public Use
  Company Number: US-AMGEN-USASP2013004497

PATIENT
  Age: 40 Year
  Sex: Female
  Weight: 77.1 kg

DRUGS (3)
  1. ENBREL [Suspect]
     Indication: RHEUMATOID ARTHRITIS
     Dosage: 50 MG, QWK
     Route: 058
     Dates: start: 2005
  2. METHOTREXATE [Concomitant]
     Indication: RHEUMATOID ARTHRITIS
     Dosage: 0.8 UNK, QWK
     Route: 058
     Dates: start: 2009
  3. FOLIC ACID [Concomitant]
     Indication: RHEUMATOID ARTHRITIS
     Dosage: 1 MG, QD
     Route: 048
     Dates: start: 2009

REACTIONS (12)
  - Breast pain [Not Recovered/Not Resolved]
  - Vulvovaginal burning sensation [Recovered/Resolved]
  - Vulvovaginal pruritus [Recovered/Resolved]
  - Erythema [Not Recovered/Not Resolved]
  - Wound secretion [Not Recovered/Not Resolved]
  - Sneezing [Recovered/Resolved]
  - Ear discomfort [Recovered/Resolved]
  - Wound [Not Recovered/Not Resolved]
  - Malaise [Unknown]
  - Paraesthesia [Recovered/Resolved]
  - Bronchitis [Recovered/Resolved]
  - Lymphadenopathy [Recovered/Resolved]
